APPROVED DRUG PRODUCT: CHLOROPROCAINE HYDROCHLORIDE
Active Ingredient: CHLOROPROCAINE HYDROCHLORIDE
Strength: 2%
Dosage Form/Route: INJECTABLE;INJECTION
Application: A040273 | Product #001 | TE Code: AP
Applicant: HIKMA PHARMACEUTICALS USA INC
Approved: Sep 9, 1998 | RLD: No | RS: No | Type: RX